FAERS Safety Report 5611347-5 (Version None)
Quarter: 2008Q1

REPORT INFORMATION
  Report Type: 
  Country: None (occurrence: None)
  Receive Date: 20080201
  Receipt Date: 20080122
  Transmission Date: 20080703
  Serious: Yes (Hospitalization)
  Sender: FDA-Public Use
  Company Number: FR-PFIZER INC-2008006312

PATIENT
  Sex: Female
  Weight: 50 kg

DRUGS (1)
  1. SU-011,248 [Suspect]
     Route: 048

REACTIONS (3)
  - ABDOMINAL PAIN [None]
  - MELAENA [None]
  - VOMITING [None]
